FAERS Safety Report 6053182-2 (Version None)
Quarter: 2009Q1

REPORT INFORMATION
  Report Type: 
  Country: None (occurrence: None)
  Receive Date: 20090127
  Receipt Date: 20090112
  Transmission Date: 20090719
  Serious: Yes (Hospitalization)
  Sender: FDA-Public Use
  Company Number: KP-GENENTECH-275660

PATIENT
  Sex: Female

DRUGS (5)
  1. PERTUZUMAB [Suspect]
     Indication: BREAST CANCER METASTATIC
     Dosage: 420 MG, Q3W
     Route: 042
     Dates: start: 20080904
  2. TRASTUZUMAB [Suspect]
     Indication: BREAST CANCER METASTATIC
     Dosage: 359 MG, Q3W
     Route: 042
     Dates: start: 20080905
  3. DOCETAXEL [Suspect]
     Indication: BREAST CANCER METASTATIC
     Dosage: 125 MG, Q3W
     Route: 042
     Dates: start: 20080905, end: 20080925
  4. DOCETAXEL [Suspect]
     Dosage: 91 MG, Q3W
     Dates: start: 20080925
  5. HEXAMIDINE [Suspect]
     Indication: DRUG USE FOR UNKNOWN INDICATION
     Dosage: UNK
     Dates: start: 20080904

REACTIONS (1)
  - HERPES ZOSTER [None]
